FAERS Safety Report 7058465-5 (Version None)
Quarter: 2010Q4

REPORT INFORMATION
  Report Type: 
  Country: None (occurrence: None)
  Receive Date: 20101022
  Receipt Date: 20101011
  Transmission Date: 20110411
  Serious: Yes (Hospitalization)
  Sender: FDA-Public Use
  Company Number: ZA-SANOFI-AVENTIS-2010SA061592

PATIENT
  Age: 52 Year
  Sex: Male

DRUGS (1)
  1. KETEK [Suspect]
     Indication: BRONCHOPNEUMONIA
     Route: 048
     Dates: start: 20101005, end: 20101009

REACTIONS (1)
  - DELIRIUM [None]
